FAERS Safety Report 7327403-X (Version None)
Quarter: 2011Q1

REPORT INFORMATION
  Report Type: 
  Country: None (occurrence: None)
  Receive Date: 20110303
  Receipt Date: 20110216
  Transmission Date: 20110831
  Serious: Yes (Hospitalization)
  Sender: FDA-Public Use
  Company Number: FR-BAYER-2011-015574

PATIENT
  Age: 82 Year
  Sex: Female

DRUGS (3)
  1. MOXIFLOXACIN HCL [Suspect]
     Indication: PRODUCT USED FOR UNKNOWN INDICATION
     Dosage: UNK
     Dates: start: 20110214
  2. CARBOCISTEINE [Concomitant]
     Indication: ASTHMA
  3. PREDNISOLONE [Concomitant]
     Indication: ASTHMA
     Dosage: UNK
     Dates: start: 20110214

REACTIONS (4)
  - HYPERSENSITIVITY [None]
  - ACUTE RESPIRATORY FAILURE [None]
  - PULMONARY OEDEMA [None]
  - URTICARIA [None]
